FAERS Safety Report 9696777 (Version 1)
Quarter: 2013Q4

REPORT INFORMATION
  Report Type: Spontaneous
  Country: US (occurrence: US)
  Receive Date: 20131119
  Receipt Date: 20131119
  Transmission Date: 20140711
  Serious: Yes (Other)
  Sender: FDA-Public Use
  Company Number: US-ELI_LILLY_AND_COMPANY-US201311002769

PATIENT
  Sex: Female

DRUGS (2)
  1. HUMULIN 30% REGULAR, 70% NPH [Suspect]
     Indication: DIABETES MELLITUS
     Dosage: 30 U, EACH MORNING
     Route: 065
  2. HUMULIN 30% REGULAR, 70% NPH [Suspect]
     Dosage: 10 U, EACH EVENING
     Route: 065

REACTIONS (5)
  - Pulmonary oedema [Unknown]
  - Blood pressure increased [Unknown]
  - Blood glucose increased [Unknown]
  - Underdose [Unknown]
  - Injection site pain [Unknown]
